FAERS Safety Report 18062946 (Version 1)
Quarter: 2020Q3

REPORT INFORMATION
  Report Type: Spontaneous
  Country: FR (occurrence: FR)
  Receive Date: 20200724
  Receipt Date: 20200724
  Transmission Date: 20201103
  Serious: Yes (Hospitalization)
  Sender: FDA-Public Use
  Company Number: FR-TEVA-2020-FR-1804145

PATIENT
  Age: 36 Year
  Sex: Female

DRUGS (14)
  1. FLUOXETINE [Suspect]
     Active Substance: FLUOXETINE HYDROCHLORIDE
     Indication: POISONING DELIBERATE
     Dosage: 6 DOSAGE FORMS
     Route: 048
     Dates: start: 20140207, end: 20140207
  2. ANTARENE CODEINE [Suspect]
     Active Substance: CODEINE PHOSPHATE\IBUPROFEN
     Indication: POISONING DELIBERATE
     Dosage: 10 DOSAGE FORMS
     Route: 048
     Dates: start: 20140207, end: 20140207
  3. ABILIFY [Suspect]
     Active Substance: ARIPIPRAZOLE
     Indication: POISONING DELIBERATE
     Dosage: 3 DOSAGE FORMS
     Route: 048
     Dates: start: 20140207, end: 20140207
  4. DEPAKOTE [Suspect]
     Active Substance: DIVALPROEX SODIUM
     Indication: POISONING DELIBERATE
     Dosage: 9 DOSAGE FORMS
     Route: 048
     Dates: start: 20140207, end: 20140207
  5. CYMBALTA [Suspect]
     Active Substance: DULOXETINE HYDROCHLORIDE
     Indication: POISONING DELIBERATE
     Dosage: 28 DOSAGE FORMS
     Route: 048
     Dates: start: 20140207, end: 20140207
  6. DIPIPERON 40 MG, COMPRIME SECABLE [Suspect]
     Active Substance: PIPAMPERONE HYDROCHLORIDE
     Indication: POISONING DELIBERATE
     Dosage: FORM OF ADMIN. TEXT : COMPRESSED TABLET, UNIT DOSE: 4.5 DOSAGE FORMS
     Route: 048
     Dates: start: 20140207, end: 20140207
  7. ESOMEPRAZOLE. [Suspect]
     Active Substance: ESOMEPRAZOLE MAGNESIUM
     Indication: POISONING DELIBERATE
     Dosage: 3 DOSAGE FORMS
     Route: 048
     Dates: start: 20140207, end: 20140207
  8. TRANXENE [Suspect]
     Active Substance: CLORAZEPATE DIPOTASSIUM
     Indication: POISONING DELIBERATE
     Dosage: 9 DOSAGE FORMS
     Route: 048
     Dates: start: 20140207, end: 20140207
  9. HAVLANE, COMPRIME SECABLE [Suspect]
     Active Substance: LOPRAZOLAM MESILATE
     Indication: POISONING DELIBERATE
     Dosage: 3 DOSAGE FORMS, FORM OF ADMIN. TEXT : SQUEEZABLE TABLET
     Route: 048
     Dates: start: 20140207, end: 20140207
  10. LEVOTHYROX 75 MICROGRAMMES, COMPRIME SECABLE [Suspect]
     Active Substance: LEVOTHYROXINE SODIUM
     Indication: POISONING DELIBERATE
     Dosage: FORM OF ADMIN. TEXT : DRY TABLET, UNIT DOSE: 3 DOSAGE FORMS
     Route: 048
     Dates: start: 20140207, end: 20140207
  11. DOLIPRANE [Suspect]
     Active Substance: ACETAMINOPHEN
     Indication: POISONING DELIBERATE
     Dosage: 8 DOSAGE FORMS
     Route: 048
     Dates: start: 20140207, end: 20140207
  12. VENLAFAXINE [Suspect]
     Active Substance: VENLAFAXINE HYDROCHLORIDE
     Indication: POISONING DELIBERATE
     Dosage: 3 DOSAGE FORMS
     Route: 048
     Dates: start: 20140207, end: 20140207
  13. SERESTA 50 MG, COMPRIME SECABLE [Suspect]
     Active Substance: OXAZEPAM
     Dosage: FORM OF ADMIN. TEXT : SCORED TABLET, UNIT DOSE: 7.5 DOSAGE FORMS
     Route: 048
     Dates: start: 20140207, end: 20140207
  14. TRIMEBUTINE [Suspect]
     Active Substance: TRIMEBUTINE
     Indication: POISONING DELIBERATE
     Dosage: 6 DOSAGE FORMS
     Route: 048
     Dates: start: 20140207, end: 20140207

REACTIONS (1)
  - Coma [Recovered/Resolved]

NARRATIVE: CASE EVENT DATE: 20140207
